FAERS Safety Report 14262262 (Version 5)
Quarter: 2018Q3

REPORT INFORMATION
  Report Type: Spontaneous
  Country: DE (occurrence: DE)
  Receive Date: 20171208
  Receipt Date: 20180721
  Transmission Date: 20181010
  Serious: Yes (Death, Hospitalization, Other)
  Sender: FDA-Public Use
  Company Number: DE-ACCORD-061735

PATIENT
  Age: 78 Year
  Sex: Male

DRUGS (11)
  1. TIOTROPIUM/TIOTROPIUM BROMIDE [Suspect]
     Active Substance: TIOTROPIUM BROMIDE
     Indication: PNEUMONIA
     Dates: start: 201601
  2. DEXTROMETHORPHAN [Concomitant]
     Active Substance: DEXTROMETHORPHAN
     Indication: DEMENTIA WITH LEWY BODIES
     Dosage: INCREASED TO 40 MG/D DIVIDED INTO 2 DOSAGES
     Dates: start: 2017
  3. SPIRIVA [Suspect]
     Active Substance: TIOTROPIUM BROMIDE MONOHYDRATE
     Indication: PNEUMONIA
     Dates: start: 2016
  4. LORAZEPAM. [Suspect]
     Active Substance: LORAZEPAM
     Indication: DELIRIUM
     Dates: start: 2016
  5. FLUPENTIXOL/FLUPENTIXOL DECANOATE/FLUPENTIXOL DIHYDROCHLORIDE [Concomitant]
     Indication: DEMENTIA WITH LEWY BODIES
     Route: 048
  6. FORMOTEROL [Suspect]
     Active Substance: FORMOTEROL
     Dates: start: 2016
  7. AMPICILLIN/SULBACTAM [Suspect]
     Active Substance: AMPICILLIN SODIUM\SULBACTAM SODIUM
     Indication: PNEUMONIA
     Dates: start: 201601
  8. PAROXETINE. [Concomitant]
     Active Substance: PAROXETINE
     Indication: DELIRIUM
     Dosage: ALSO RECEIVED 10 MG IN 2017
  9. QUETIAPINE. [Suspect]
     Active Substance: QUETIAPINE
     Indication: DEMENTIA WITH LEWY BODIES
     Dosage: FINAL DOSE OF QUETIAPINE WAS 100 MG/D
     Dates: start: 2016
  10. RIVASTIGMINE/RIVASTIGMINE TARTRATE [Concomitant]
     Indication: PRODUCT USED FOR UNKNOWN INDICATION
  11. DRONABINOL. [Concomitant]
     Active Substance: DRONABINOL
     Indication: DEMENTIA WITH LEWY BODIES
     Dosage: ALSO 15 MG DAILY

REACTIONS (13)
  - Hangover [Recovering/Resolving]
  - Aggression [Recovering/Resolving]
  - Agitation [None]
  - Paranoia [Recovering/Resolving]
  - Fatigue [None]
  - Sleep disorder [Recovering/Resolving]
  - Delirium [Fatal]
  - Withdrawal syndrome [Recovering/Resolving]
  - Completed suicide [Fatal]
  - Rebound effect [Fatal]
  - Paradoxical drug reaction [Fatal]
  - Condition aggravated [Recovering/Resolving]
  - Off label use [Unknown]

NARRATIVE: CASE EVENT DATE: 2016
